FAERS Safety Report 9819655 (Version 4)
Quarter: 2014Q4

REPORT INFORMATION
  Report Type: Spontaneous
  Country: US (occurrence: US)
  Receive Date: 20140115
  Receipt Date: 20141201
  Transmission Date: 20150529
  Serious: Yes (Death, Life-Threatening, Hospitalization, Disabling, Other)
  Sender: FDA-Public Use
  Company Number: US-009507513-1401USA005449

PATIENT
  Sex: Male
  Weight: 108.84 kg

DRUGS (1)
  1. JANUVIA [Suspect]
     Active Substance: SITAGLIPTIN PHOSPHATE
     Indication: DIABETES MELLITUS
     Dosage: 100 MG, QD
     Route: 048
     Dates: start: 20110714, end: 201208

REACTIONS (24)
  - Metastases to liver [Unknown]
  - Duodenal obstruction [Unknown]
  - Bile duct stent insertion [Unknown]
  - Constipation [Unknown]
  - Biliary sphincterotomy [Unknown]
  - Anaemia [Not Recovered/Not Resolved]
  - Drug intolerance [Unknown]
  - Small intestine carcinoma [Unknown]
  - Osteoarthritis [Unknown]
  - Bile duct stent insertion [Unknown]
  - Pancreatitis [Unknown]
  - Intestinal stent insertion [Unknown]
  - Pneumonia aspiration [Unknown]
  - Gastrooesophageal reflux disease [Unknown]
  - Constipation [Not Recovered/Not Resolved]
  - Pancreatic carcinoma metastatic [Fatal]
  - Metastases to liver [Unknown]
  - Thrombocytopenia [Unknown]
  - Cardiac murmur [Unknown]
  - Upper respiratory tract infection [Unknown]
  - Bile duct stenosis [Unknown]
  - Pancreatic carcinoma [Unknown]
  - Hypoxia [Unknown]
  - Cholecystectomy [Unknown]

NARRATIVE: CASE EVENT DATE: 201112
